FAERS Safety Report 21442855 (Version 13)
Quarter: 2024Q1

REPORT INFORMATION
  Report Type: Report from Study
  Country: US (occurrence: US)
  Receive Date: 20221012
  Receipt Date: 20240312
  Transmission Date: 20240409
  Serious: Yes (Life-Threatening, Hospitalization, Other)
  Sender: FDA-Public Use
  Company Number: US-BoehringerIngelheim-2022-BI-106675

PATIENT
  Age: 83 Year
  Sex: Female

DRUGS (6)
  1. OFEV [Suspect]
     Active Substance: NINTEDANIB
     Indication: Idiopathic pulmonary fibrosis
     Route: 048
     Dates: start: 20211126
  2. OFEV [Suspect]
     Active Substance: NINTEDANIB
     Indication: Interstitial lung disease
     Route: 048
     Dates: start: 20220201
  3. TYVASO DPI [Concomitant]
     Active Substance: TREPROSTINIL
     Indication: Product used for unknown indication
  4. SYNTHROID [Concomitant]
     Active Substance: LEVOTHYROXINE SODIUM
     Indication: Product used for unknown indication
  5. SYNTHROID [Concomitant]
     Active Substance: LEVOTHYROXINE SODIUM
  6. JARDIANCE [Concomitant]
     Active Substance: EMPAGLIFLOZIN
     Indication: Pulmonary fibrosis
     Dates: start: 202308

REACTIONS (52)
  - Overdose [Unknown]
  - Gastroenteritis viral [Unknown]
  - Fall [Not Recovered/Not Resolved]
  - Pulmonary oedema [Unknown]
  - Multiple allergies [Not Recovered/Not Resolved]
  - Cardiac failure congestive [Unknown]
  - Localised infection [Unknown]
  - Cellulitis [Unknown]
  - Increased tendency to bruise [Unknown]
  - Peripheral swelling [Unknown]
  - Asthenia [Recovering/Resolving]
  - Fluid retention [Unknown]
  - Dysuria [Not Recovered/Not Resolved]
  - Nervousness [Not Recovered/Not Resolved]
  - Trichorrhexis [Not Recovered/Not Resolved]
  - Contusion [Recovered/Resolved]
  - Depression [Not Recovered/Not Resolved]
  - Asthenia [Not Recovered/Not Resolved]
  - Fluid retention [Not Recovered/Not Resolved]
  - Respiratory tract congestion [Not Recovered/Not Resolved]
  - Productive cough [Not Recovered/Not Resolved]
  - Decreased appetite [Not Recovered/Not Resolved]
  - Weight decreased [Not Recovered/Not Resolved]
  - Fatigue [Not Recovered/Not Resolved]
  - Dyspnoea [Not Recovered/Not Resolved]
  - Lethargy [Not Recovered/Not Resolved]
  - Diarrhoea [Unknown]
  - Constipation [Unknown]
  - Tremor [Not Recovered/Not Resolved]
  - Dyspnoea exertional [Unknown]
  - Hypothyroidism [Unknown]
  - Rash [Not Recovered/Not Resolved]
  - Gout [Not Recovered/Not Resolved]
  - Alopecia [Unknown]
  - Dry mouth [Not Recovered/Not Resolved]
  - Gastrointestinal disorder [Recovered/Resolved]
  - Anxiety [Not Recovered/Not Resolved]
  - Gastrointestinal sounds abnormal [Not Recovered/Not Resolved]
  - Blood pressure decreased [Not Recovered/Not Resolved]
  - Heart rate increased [Unknown]
  - Abdominal discomfort [Not Recovered/Not Resolved]
  - Gastrointestinal pain [Not Recovered/Not Resolved]
  - Gingival bleeding [Unknown]
  - Back disorder [Unknown]
  - Paranasal sinus hypersecretion [Unknown]
  - Productive cough [Recovered/Resolved]
  - Sinusitis [Unknown]
  - Oxygen saturation decreased [Unknown]
  - Post procedural complication [Unknown]
  - Dental caries [Unknown]
  - Dental prosthesis placement [Unknown]
  - Insomnia [Unknown]

NARRATIVE: CASE EVENT DATE: 20211101
